FAERS Safety Report 4319175-8 (Version None)
Quarter: 2004Q1

REPORT INFORMATION
  Report Type: 
  Country: None (occurrence: None)
  Receive Date: 20040316
  Receipt Date: 20040301
  Transmission Date: 20041129
  Serious: Yes (Life-Threatening, Hospitalization)
  Sender: FDA-Public Use
  Company Number: US_0403101220

PATIENT
  Age: 59 Year
  Sex: Male

DRUGS (7)
  1. CEFACLOR [Suspect]
     Indication: BACTERIAL INFECTION
     Dosage: 750 MG
     Dates: start: 20040206, end: 20040208
  2. PL GRAN. [Concomitant]
  3. ROCEPHIN [Concomitant]
  4. BASEN (VOGLIBOSE) [Concomitant]
  5. VOLTAREN [Concomitant]
  6. LOXONIN (LOXOPROFEN SODIUM) [Concomitant]
  7. VITAMEDIN CAPSULE [Concomitant]

REACTIONS (7)
  - ACTIVATED PARTIAL THROMBOPLASTIN TIME PROLONGED [None]
  - AMMONIA INCREASED [None]
  - COMA HEPATIC [None]
  - HAEMODIALYSIS [None]
  - HEPATITIS FULMINANT [None]
  - LYMPHOMA [None]
  - PROTHROMBIN TIME PROLONGED [None]
